FAERS Safety Report 8085765-2 (Version None)
Quarter: 2012Q1

REPORT INFORMATION
  Report Type: 
  Country: None (occurrence: None)
  Receive Date: 20120128
  Receipt Date: 20110406
  Transmission Date: 20120608
  Serious: No
  Sender: FDA-Public Use
  Company Number: US-ABBOTT-11P-163-0716779-00

PATIENT
  Age: 43 Year
  Sex: Female

DRUGS (3)
  1. FOLIC ACID [Concomitant]
     Indication: PRODUCT USED FOR UNKNOWN INDICATION
     Dosage: OVER THE COUNTER
     Route: 048
  2. HUMIRA [Suspect]
     Indication: PSORIATIC ARTHROPATHY
     Dates: start: 20100601
  3. METHOTREXATE [Concomitant]
     Indication: PRODUCT USED FOR UNKNOWN INDICATION
     Dosage: 6 TABLETS 1 TIME PER WEEK
     Route: 048

REACTIONS (4)
  - BRONCHITIS [None]
  - PNEUMONIA [None]
  - DRUG INEFFECTIVE [None]
  - RASH [None]
